FAERS Safety Report 8329216-9 (Version None)
Quarter: 2012Q2

REPORT INFORMATION
  Report Type: 
  Country: None (occurrence: None)
  Receive Date: 20120502
  Receipt Date: 20120427
  Transmission Date: 20120825
  Serious: Yes (Other)
  Sender: FDA-Public Use
  Company Number: BE-JNJFOC-20120500472

PATIENT
  Sex: Male

DRUGS (2)
  1. BISOPROLOL FUMARATE [Interacting]
     Indication: PRODUCT USED FOR UNKNOWN INDICATION
     Route: 065
  2. ZYTIGA [Suspect]
     Indication: PRODUCT USED FOR UNKNOWN INDICATION
     Route: 048

REACTIONS (2)
  - BRADYCARDIA [None]
  - DRUG INTERACTION [None]
